FAERS Safety Report 5874555-4 (Version None)
Quarter: 2008Q3

REPORT INFORMATION
  Report Type: 
  Country: None (occurrence: None)
  Receive Date: 20080909
  Receipt Date: 20080904
  Transmission Date: 20090109
  Serious: Yes (Death, Other)
  Sender: FDA-Public Use
  Company Number: PHHY2008JP04557

PATIENT
  Age: 49 Year
  Sex: Female

DRUGS (11)
  1. NEORAL [Suspect]
     Indication: INTERSTITIAL LUNG DISEASE
     Dosage: 140 MG/ DAY
     Route: 048
     Dates: start: 20060901, end: 20070501
  2. NEORAL [Suspect]
     Dosage: 180 MG/ DAY
     Route: 048
     Dates: start: 20070601
  3. IMMUNE GLOBULIN INTRAVENOUS (HUMAN) [Concomitant]
     Dosage: 17.5 G/DAY
     Dates: start: 20070201
  4. IMMUNE GLOBULIN INTRAVENOUS (HUMAN) [Concomitant]
     Dosage: 5 MG
     Dates: end: 20070601
  5. PREDNISOLONE [Concomitant]
     Indication: SYSTEMIC LUPUS ERYTHEMATOSUS
     Dosage: 30 MG/ DAY
     Route: 048
     Dates: start: 20040801
  6. PREDNISOLONE [Concomitant]
     Dosage: 20 MG/DAY
     Route: 048
  7. PREDNISOLONE [Concomitant]
     Dosage: 35 MG/DAY
  8. CYCLOPHOSPHAMIDE [Concomitant]
     Dosage: 750 MG
     Dates: start: 20070401
  9. METHYLPREDNISOLONE [Concomitant]
     Dosage: 500 MG/DAY
  10. METHYLPREDNISOLONE [Concomitant]
     Dosage: 1000 MG/D
     Dates: end: 20070601
  11. SIVELESTAT [Concomitant]
     Dosage: 200 MG/D

REACTIONS (10)
  - BLOOD CREATINE PHOSPHOKINASE INCREASED [None]
  - BLOOD LACTATE DEHYDROGENASE INCREASED [None]
  - COUGH [None]
  - DISEASE PROGRESSION [None]
  - ENDOTRACHEAL INTUBATION [None]
  - HYPOVENTILATION [None]
  - INTERSTITIAL LUNG DISEASE [None]
  - LIVER DISORDER [None]
  - PNEUMOMEDIASTINUM [None]
  - SUBCUTANEOUS EMPHYSEMA [None]
